FAERS Safety Report 7372028-3 (Version None)
Quarter: 2011Q1

REPORT INFORMATION
  Report Type: 
  Country: None (occurrence: None)
  Receive Date: 20110324
  Receipt Date: 20110311
  Transmission Date: 20110831
  Serious: Yes (Other)
  Sender: FDA-Public Use
  Company Number: PHHY2011US21474

PATIENT
  Sex: Female

DRUGS (3)
  1. VITAMIN D [Concomitant]
  2. RECLAST [Suspect]
     Dosage: 5 MG, YEARLY
     Route: 042
  3. CALCIUM [Concomitant]

REACTIONS (3)
  - THROMBOSIS [None]
  - PAIN [None]
  - STRESS FRACTURE [None]
